FAERS Safety Report 6989186-2 (Version None)
Quarter: 2010Q3

REPORT INFORMATION
  Report Type: 
  Country: None (occurrence: None)
  Receive Date: 20100916
  Receipt Date: 20090902
  Transmission Date: 20110219
  Serious: Yes (Other)
  Sender: FDA-Public Use
  Company Number: GB-PFIZER INC-2009255383

PATIENT
  Age: 28 Year
  Sex: Female
  Weight: 108.84 kg

DRUGS (3)
  1. LYRICA [Suspect]
     Indication: EPILEPSY
     Dosage: 150 MG, 2X/DAY
     Route: 048
     Dates: end: 20090720
  2. LYRICA [Suspect]
     Dosage: UNK
     Dates: start: 20080508
  3. LAMICTAL [Concomitant]
     Indication: EPILEPSY
     Dosage: 500 MG, UNK
     Dates: start: 20000101

REACTIONS (2)
  - DIZZINESS [None]
  - MYOCLONUS [None]
